FAERS Safety Report 7757306-8 (Version None)
Quarter: 2011Q3

REPORT INFORMATION
  Report Type: 
  Country: None (occurrence: None)
  Receive Date: 20110916
  Receipt Date: 20110909
  Transmission Date: 20111222
  Serious: Yes (Hospitalization, Congenital Anomaly)
  Sender: FDA-Public Use
  Company Number: TH-GILEAD-2011-0039331

PATIENT
  Sex: Male

DRUGS (5)
  1. TRUVADA [Suspect]
     Indication: HIV INFECTION
     Dates: start: 20110420
  2. LAMIVUDINE [Concomitant]
     Indication: HIV INFECTION
  3. EFAVIRENZ [Concomitant]
     Indication: HIV INFECTION
  4. LOPINAVIR [Concomitant]
     Indication: HIV INFECTION
  5. ZIDOVUDINE [Concomitant]
     Indication: HIV INFECTION

REACTIONS (1)
  - ABDOMINAL MASS [None]
